FAERS Safety Report 4451445-5 (Version None)
Quarter: 2004Q3

REPORT INFORMATION
  Report Type: 
  Country: None (occurrence: None)
  Receive Date: 20040915
  Receipt Date: 20040901
  Transmission Date: 20050211
  Serious: Yes (Other)
  Sender: FDA-Public Use
  Company Number: 2004062834

PATIENT
  Sex: 0

DRUGS (3)
  1. NEURONTIN [Suspect]
     Indication: ILL-DEFINED DISORDER
  2. IBUPROFEN [Suspect]
     Indication: ILL-DEFINED DISORDER
  3. ACETAMINOPHEN [Concomitant]
     Indication: ILL-DEFINED DISORDER

REACTIONS (3)
  - ARTHROPATHY [None]
  - BACK DISORDER [None]
  - MUSCULOSKELETAL DISORDER [None]
